FAERS Safety Report 6323161-6 (Version None)
Quarter: 2009Q3

REPORT INFORMATION
  Report Type: 
  Country: None (occurrence: None)
  Receive Date: 20090824
  Receipt Date: 20090812
  Transmission Date: 20100115
  Serious: Yes (Other)
  Sender: FDA-Public Use
  Company Number: KE-PFIZER INC-2009255020

PATIENT

DRUGS (1)
  1. DALACIN [Suspect]
     Route: 042

REACTIONS (2)
  - GANGRENE [None]
  - MEDICATION ERROR [None]
